FAERS Safety Report 8961924 (Version 1)
Quarter: 2012Q4

REPORT INFORMATION
  Report Type: Report from Study
  Country: US (occurrence: US)
  Receive Date: 20121213
  Receipt Date: 20121213
  Transmission Date: 20130627
  Serious: Yes (Hospitalization)
  Sender: FDA-Public Use
  Company Number: US-009507513-1212USA003224

PATIENT
  Age: 55 Year
  Sex: Male
  Weight: 60.3 kg

DRUGS (5)
  1. ZOCOR [Suspect]
     Dosage: 10 mg, qd
     Dates: start: 200706
  2. PEGINTERFERON ALFA-2A [Suspect]
     Indication: CHRONIC HEPATITIS B
     Dosage: DOSE BLINDED, (1 wk )
     Route: 058
     Dates: start: 20080516
  3. METFORMIN [Suspect]
     Dosage: 1 g, qd
     Dates: start: 200706
  4. FOSINOPRIL SODIUM [Suspect]
     Dosage: 40 mg, qd
     Dates: start: 200706
  5. INSULIN [Suspect]
     Dosage: 25 DF am and 25 DF pm, bid
     Dates: start: 199805

REACTIONS (1)
  - Malaise [Recovered/Resolved]
